FAERS Safety Report 17648488 (Version 1)
Quarter: 2020Q2

REPORT INFORMATION
  Report Type: Report from Study
  Country: US (occurrence: US)
  Receive Date: 20200408
  Receipt Date: 20200408
  Transmission Date: 20200713
  Serious: Yes (Hospitalization, Other)
  Sender: FDA-Public Use
  Company Number: US-TEVA-2020-US-1192949

PATIENT
  Sex: Female

DRUGS (1)
  1. CLOZAPINE TEVA [Suspect]
     Active Substance: CLOZAPINE
     Route: 048

REACTIONS (5)
  - Granulocytopenia [Unknown]
  - White blood cell count decreased [Unknown]
  - Hepatic enzyme decreased [Unknown]
  - Catatonia [Unknown]
  - Agranulocytosis [Unknown]
